FAERS Safety Report 9818638 (Version 3)
Quarter: 2014Q1

REPORT INFORMATION
  Report Type: Spontaneous
  Country: US (occurrence: US)
  Receive Date: 20140115
  Receipt Date: 20140224
  Transmission Date: 20141002
  Serious: Yes (Death, Hospitalization)
  Sender: FDA-Public Use
  Company Number: US-SA-2014SA004908

PATIENT
  Age: 71 Year
  Sex: Male

DRUGS (18)
  1. LOVENOX [Suspect]
     Indication: PULMONARY EMBOLISM
     Route: 051
     Dates: start: 20130101, end: 20130707
  2. TRIFLURIDINE [Suspect]
     Indication: COLORECTAL CANCER METASTATIC
     Route: 048
     Dates: start: 20130530, end: 20130610
  3. WARFARIN SODIUM [Suspect]
     Indication: PULMONARY EMBOLISM
     Route: 065
     Dates: start: 20130501, end: 20130707
  4. COLACE [Concomitant]
     Indication: CONSTIPATION PROPHYLAXIS
     Route: 065
     Dates: start: 20130514, end: 20130707
  5. LORAZEPAM [Concomitant]
     Indication: ANXIETY
     Route: 065
     Dates: start: 20130506, end: 20130707
  6. ONDANSETRON HYDROCHLORIDE [Concomitant]
     Indication: PROPHYLAXIS OF NAUSEA AND VOMITING
     Route: 065
     Dates: start: 20111025, end: 20130707
  7. OXYCODONE [Concomitant]
     Indication: PAIN PROPHYLAXIS
     Route: 065
     Dates: start: 20130530, end: 20130707
  8. METOPROLOL [Concomitant]
     Indication: HYPERTENSION
     Route: 065
     Dates: start: 20110823, end: 20130707
  9. ATROPINE SULFATE/DIPHENOXYLATE HYDROCHLORIDE [Concomitant]
     Indication: DIARRHOEA
     Route: 065
     Dates: start: 20111212, end: 20130707
  10. VITAMIN D3 [Concomitant]
     Indication: VITAMIN SUPPLEMENTATION
     Route: 065
     Dates: start: 20130514, end: 20130707
  11. MORPHINE [Concomitant]
     Indication: ARTHRALGIA
     Dates: start: 20130629, end: 20130707
  12. MORPHINE [Concomitant]
     Indication: PAIN IN EXTREMITY
     Dates: start: 20130629, end: 20130707
  13. VITAMIN B COMPLEX [Concomitant]
     Indication: VITAMIN SUPPLEMENTATION
     Dates: start: 20130514, end: 20130707
  14. CYANOCOBALAMIN [Concomitant]
     Indication: VITAMIN SUPPLEMENTATION
     Dates: start: 20111025, end: 20130707
  15. PAROXETINE [Concomitant]
     Indication: DEPRESSION
     Dates: start: 20111025, end: 20130707
  16. TYLENOL [Concomitant]
     Indication: ARTHRALGIA
     Dates: start: 20130629, end: 20130707
  17. TYLENOL [Concomitant]
     Indication: PAIN IN EXTREMITY
     Dates: start: 20130629, end: 20130707
  18. METOPROLOL [Concomitant]
     Indication: HYPERTENSION
     Dates: start: 20110823, end: 20130707

REACTIONS (4)
  - Cardio-respiratory arrest [Fatal]
  - Renal failure [Fatal]
  - Acidosis [Fatal]
  - Haemorrhage intracranial [Fatal]
